FAERS Safety Report 9144084 (Version 1)
Quarter: 2013Q1

REPORT INFORMATION
  Report Type: Spontaneous
  Country: NO (occurrence: NO)
  Receive Date: 20130306
  Receipt Date: 20130306
  Transmission Date: 20140127
  Serious: Yes (Disabling)
  Sender: FDA-Public Use
  Company Number: NO-PFIZER INC-2013073029

PATIENT
  Age: 74 Year
  Sex: Male

DRUGS (6)
  1. AZITROMAX [Suspect]
     Indication: LOWER RESPIRATORY TRACT INFECTION
     Dosage: 1X1 FOR 3 DAYS, THEN 0,5 EVERY OTHER DAY FOR 1 WEEK
     Route: 048
     Dates: start: 20121110, end: 20121120
  2. RIVOTRIL [Interacting]
     Indication: POLYNEUROPATHY
     Dosage: 1 X 2-4
     Route: 048
     Dates: start: 201201
  3. VENTOLINE [Concomitant]
     Indication: ASTHMA
     Dosage: 0.2 MG, AS NEEDED
     Route: 055
  4. SELOZOK [Concomitant]
     Indication: HYPERTENSION
     Dosage: 50 MG, 2X/DAY
     Route: 048
  5. SPIRIVA [Concomitant]
     Indication: OBSTRUCTIVE AIRWAYS DISORDER
     Dosage: 2.5 UG, 2X/DAY
     Route: 048
  6. SERETIDE [Concomitant]
     Indication: ASTHMA
     Route: 048

REACTIONS (2)
  - Drug interaction [Recovering/Resolving]
  - Muscular weakness [Recovering/Resolving]
